FAERS Safety Report 9606576 (Version 1)
Quarter: 2013Q4

REPORT INFORMATION
  Report Type: Spontaneous
  Country: US (occurrence: US)
  Receive Date: 20131008
  Receipt Date: 20131008
  Transmission Date: 20140711
  Serious: No
  Sender: FDA-Public Use
  Company Number: US-AMGEN-USASP2013056693

PATIENT
  Age: 74 Year
  Sex: Female

DRUGS (7)
  1. PROLIA [Suspect]
     Indication: OSTEOPOROSIS POSTMENOPAUSAL
     Dosage: UNK
     Route: 065
     Dates: start: 201208
  2. LEVOXYL [Concomitant]
  3. NORVASC [Concomitant]
  4. LISINOPRIL [Concomitant]
  5. PREVACID [Concomitant]
  6. VITAMIN D                          /00318501/ [Concomitant]
  7. VITAMIN C                          /00008001/ [Concomitant]

REACTIONS (2)
  - Mouth injury [Recovered/Resolved]
  - Drug hypersensitivity [Unknown]
